FAERS Safety Report 6936859-3 (Version None)
Quarter: 2010Q3

REPORT INFORMATION
  Report Type: 
  Country: None (occurrence: None)
  Receive Date: 20100823
  Receipt Date: 20100818
  Transmission Date: 20110219
  Serious: Yes (Hospitalization)
  Sender: FDA-Public Use
  Company Number: AR-BRISTOL-MYERS SQUIBB COMPANY-15209299

PATIENT
  Age: 32 Year
  Sex: Female

DRUGS (9)
  1. ABATACEPT [Suspect]
     Indication: RHEUMATOID ARTHRITIS
     Dosage: ALSO TAKEN VIA SC AT DOSE 250MG FROM 15JUL2008-CONT (109 COURSES).
     Route: 042
     Dates: start: 20080715
  2. METHOTREXATE [Suspect]
     Dates: start: 20091006
  3. ACETAMINOPHEN [Concomitant]
     Dates: start: 20091006
  4. ENALAPRIL MALEATE [Concomitant]
     Dates: start: 20100630
  5. MODURETIC 5-50 [Concomitant]
     Dates: start: 20100713
  6. ESTROGEN [Concomitant]
     Dates: start: 20030101
  7. PROGESTERONE [Concomitant]
     Dates: start: 20030101
  8. FOLIC ACID [Concomitant]
     Dates: start: 20070301
  9. ZOLPIDEM [Concomitant]
     Dates: start: 20030101

REACTIONS (2)
  - LUPUS NEPHRITIS [None]
  - RENAL COLIC [None]
